FAERS Safety Report 6606819-0 (Version None)
Quarter: 2010Q1

REPORT INFORMATION
  Report Type: 
  Country: None (occurrence: None)
  Receive Date: 20100226
  Receipt Date: 20090211
  Transmission Date: 20100710
  Serious: No
  Sender: FDA-Public Use
  Company Number: US-ALLERGAN-0901814US

PATIENT
  Sex: Female

DRUGS (2)
  1. BOTOX COSMETIC [Suspect]
     Indication: SKIN WRINKLING
     Dosage: 40 UNITS, SINGLE
     Route: 030
     Dates: start: 20090102, end: 20090102
  2. BOTOX COSMETIC [Suspect]
     Dosage: 7 UNITS, SINGLE
     Route: 030
     Dates: start: 20090117, end: 20090117

REACTIONS (1)
  - DRUG INEFFECTIVE [None]
